FAERS Safety Report 9862540 (Version 3)
Quarter: 2014Q1

REPORT INFORMATION
  Report Type: Spontaneous
  Country: BR (occurrence: BR)
  Receive Date: 20140203
  Receipt Date: 20140219
  Transmission Date: 20141002
  Serious: Yes (Other)
  Sender: FDA-Public Use
  Company Number: BR-GALDERMA-BR14000370

PATIENT
  Age: 59 Year
  Sex: Female
  Weight: 64 kg

DRUGS (2)
  1. DIFFERIN [Suspect]
     Indication: THERAPEUTIC SKIN CARE TOPICAL
     Dosage: 0.3%
     Route: 061
     Dates: start: 20140103, end: 20140105
  2. BETALOR [Concomitant]
     Indication: HYPERTENSION
     Dosage: 5MG+25MG
     Route: 048

REACTIONS (5)
  - Eye swelling [Recovered/Resolved]
  - Ocular hyperaemia [Recovered/Resolved]
  - Vision blurred [Recovered/Resolved]
  - Eyelid oedema [Recovered/Resolved]
  - Off label use [Recovered/Resolved]
